FAERS Safety Report 23716174 (Version 1)
Quarter: 2024Q2

REPORT INFORMATION
  Report Type: Spontaneous
  Country: US (occurrence: US)
  Receive Date: 20240408
  Receipt Date: 20240408
  Transmission Date: 20240715
  Serious: Yes (Hospitalization, Other)
  Sender: FDA-Public Use
  Company Number: US-ALEMBIC PHARMACUETICALS LIMITED-2024SCAL000362

PATIENT

DRUGS (4)
  1. FLUOXETINE [Interacting]
     Active Substance: FLUOXETINE HYDROCHLORIDE
     Indication: Affective disorder
     Dosage: 60 MILLIGRAM, QD
     Route: 065
  2. FLECAINIDE [Interacting]
     Active Substance: FLECAINIDE
     Indication: Atrial tachycardia
     Dosage: 100 MILLIGRAM, BID
     Route: 065
  3. SOTALOL [Concomitant]
     Active Substance: SOTALOL
     Indication: Atrial fibrillation
     Dosage: UNK
     Route: 065
  4. METOPROLOL [Concomitant]
     Active Substance: METOPROLOL
     Indication: Atrial tachycardia
     Dosage: UNK
     Route: 065

REACTIONS (9)
  - Mental status changes [Recovered/Resolved]
  - Confusional state [Unknown]
  - Hallucination, visual [Unknown]
  - Encephalopathy [Recovered/Resolved]
  - Disorientation [Recovered/Resolved]
  - Agitation [Unknown]
  - Tachycardia [Unknown]
  - Electrocardiogram QT prolonged [Unknown]
  - Drug interaction [Unknown]
